FAERS Safety Report 8589589 (Version 3)
Quarter: 2013Q4

REPORT INFORMATION
  Report Type: Spontaneous
  Country: JP (occurrence: JP)
  Receive Date: 20120531
  Receipt Date: 20131101
  Transmission Date: 20140711
  Serious: No
  Sender: FDA-Public Use
  Company Number: JP-MSD-1205USA04838

PATIENT
  Age: 58 Year
  Sex: Male

DRUGS (3)
  1. JANUVIA [Suspect]
     Dosage: 50 MG, QD
     Route: 048
     Dates: start: 201112, end: 20120516
  2. BAYASPIRIN [Suspect]
     Dosage: DAILY DOSAGE UNKNOWN
     Route: 048
  3. SHAKUYAKU-KANZO-TO [Concomitant]
     Dosage: DAILY DOSAGE UNKNOWN
     Route: 048

REACTIONS (1)
  - Polymyositis [Recovering/Resolving]
